FAERS Safety Report 18266227 (Version 4)
Quarter: 2020Q4

REPORT INFORMATION
  Report Type: Spontaneous
  Country: JP (occurrence: JP)
  Receive Date: 20200915
  Receipt Date: 20201019
  Transmission Date: 20210113
  Serious: Yes (Hospitalization, Other)
  Sender: FDA-Public Use
  Company Number: JP-AMGEN-JPNSP2020147115

PATIENT
  Age: 83 Year
  Sex: Female
  Weight: 43 kg

DRUGS (5)
  1. ACETAMINOPHEN. [Concomitant]
     Active Substance: ACETAMINOPHEN
     Indication: ARTHRALGIA
     Dosage: 300 MILLIGRAM (AT THE TIME OF PAIN)
     Dates: start: 20200602, end: 20200702
  2. EVENITY [Suspect]
     Active Substance: ROMOSOZUMAB-AQQG
     Indication: OSTEOPOROSIS
     Dosage: 210 MILLIGRAM
     Route: 058
     Dates: start: 20200529, end: 20200804
  3. PLACENTA [Concomitant]
     Active Substance: SUS SCROFA PLACENTA
     Dosage: UNK
  4. FELBINAC [Concomitant]
     Active Substance: FELBINAC
     Indication: ARTHRALGIA
     Dosage: UNK THREE TO FOUR TIMES A DAY
     Dates: start: 20200529, end: 20200529
  5. LOXOPROFEN NA [Concomitant]
     Active Substance: LOXOPROFEN SODIUM
     Indication: ARTHRALGIA
     Dosage: 50 MILLIGRAM, QD
     Dates: start: 20200529, end: 20200529

REACTIONS (1)
  - Cardiac failure congestive [Unknown]

NARRATIVE: CASE EVENT DATE: 20200831
